FAERS Safety Report 24441162 (Version 1)
Quarter: 2024Q4

REPORT INFORMATION
  Report Type: Spontaneous
  Country: TW (occurrence: TW)
  Receive Date: 20241016
  Receipt Date: 20241016
  Transmission Date: 20250114
  Serious: Yes (Death)
  Sender: PHARMAESSENTIA
  Company Number: TW-PHARMAESSENTIA-TW-2024-PEC-004830

PATIENT
  Age: 35 Year
  Sex: Female

DRUGS (3)
  1. ROPEGINTERFERON ALFA-2B [Suspect]
     Active Substance: ROPEGINTERFERON ALFA-2B
     Indication: Histiocytic sarcoma
     Dosage: 250 MCG
     Route: 065
  2. ROPEGINTERFERON ALFA-2B [Suspect]
     Active Substance: ROPEGINTERFERON ALFA-2B
     Dosage: 500 MCG
     Route: 065
  3. VINBLASTINE [Concomitant]
     Active Substance: VINBLASTINE
     Indication: Histiocytic sarcoma
     Route: 065

REACTIONS (6)
  - Generalised oedema [Fatal]
  - Infection [Fatal]
  - Hypoalbuminaemia [Unknown]
  - Pancytopenia [Unknown]
  - Drug ineffective for unapproved indication [Unknown]
  - Off label use [Unknown]
